FAERS Safety Report 26021415 (Version 1)
Quarter: 2025Q4

REPORT INFORMATION
  Report Type: Spontaneous
  Country: EU (occurrence: EU)
  Receive Date: 20251110
  Receipt Date: 20251110
  Transmission Date: 20260118
  Serious: Yes (Death, Hospitalization, Other)
  Sender: MYLAN
  Company Number: EU-BAXTER-2025BAX022917

PATIENT
  Age: 8 Decade
  Sex: Male

DRUGS (8)
  1. TRIAMCINOLONE [Suspect]
     Active Substance: TRIAMCINOLONE
     Indication: Local anaesthesia
     Dosage: 1 MILLILITER (ULTRASOUND-GUIDED FACET JOINT BLOCKADE IN C5/C60
  2. TRIAMCINOLONE [Suspect]
     Active Substance: TRIAMCINOLONE
     Dosage: 1 MILLILITER (ULTRASOUND-GUIDED FACET JOINT BLOCKADE IN C5/C60
     Route: 037
  3. TRIAMCINOLONE [Suspect]
     Active Substance: TRIAMCINOLONE
     Dosage: 1 MILLILITER (ULTRASOUND-GUIDED FACET JOINT BLOCKADE IN C5/C60
     Route: 037
  4. TRIAMCINOLONE [Suspect]
     Active Substance: TRIAMCINOLONE
     Dosage: 1 MILLILITER (ULTRASOUND-GUIDED FACET JOINT BLOCKADE IN C5/C60
  5. BUPIVACAINE [Suspect]
     Active Substance: BUPIVACAINE
     Indication: Local anaesthesia
     Dosage: 2 MILLILITER (ULTRASOUND-GUIDED FACET JOINT BLOCKADE IN C5/C6)
  6. BUPIVACAINE [Suspect]
     Active Substance: BUPIVACAINE
     Dosage: 2 MILLILITER (ULTRASOUND-GUIDED FACET JOINT BLOCKADE IN C5/C6)
     Route: 037
  7. BUPIVACAINE [Suspect]
     Active Substance: BUPIVACAINE
     Dosage: 2 MILLILITER (ULTRASOUND-GUIDED FACET JOINT BLOCKADE IN C5/C6)
     Route: 037
  8. BUPIVACAINE [Suspect]
     Active Substance: BUPIVACAINE
     Dosage: 2 MILLILITER (ULTRASOUND-GUIDED FACET JOINT BLOCKADE IN C5/C6)

REACTIONS (9)
  - Pulseless electrical activity [Fatal]
  - Cardiac tamponade [Fatal]
  - Cardiac arrest [Fatal]
  - Circulatory collapse [Fatal]
  - Cardiovascular disorder [Fatal]
  - Mydriasis [Fatal]
  - Oedema [Fatal]
  - Hypotension [Fatal]
  - Acidosis [Fatal]
